FAERS Safety Report 7834554-X (Version None)
Quarter: 2011Q4

REPORT INFORMATION
  Report Type: 
  Country: None (occurrence: None)
  Receive Date: 20111024
  Receipt Date: 20111019
  Transmission Date: 20120403
  Serious: Yes (Death, Hospitalization, Other)
  Sender: FDA-Public Use
  Company Number: US-MERCK-1102USA01696

PATIENT
  Age: 79 Year
  Sex: Male

DRUGS (2)
  1. FOSAMAX [Suspect]
     Route: 048
  2. FOSAMAX [Suspect]
     Indication: OSTEOPOROSIS
     Route: 048
     Dates: start: 19980101, end: 20070101

REACTIONS (14)
  - DIABETES MELLITUS [None]
  - TOOTH FRACTURE [None]
  - PUBIS FRACTURE [None]
  - DEMENTIA [None]
  - FRACTURE DELAYED UNION [None]
  - BONE LOSS [None]
  - LIMB INJURY [None]
  - DEATH [None]
  - HIP FRACTURE [None]
  - GASTROOESOPHAGEAL REFLUX DISEASE [None]
  - FIBULA FRACTURE [None]
  - FEMUR FRACTURE [None]
  - FEMORAL NECK FRACTURE [None]
  - HERNIA [None]
